FAERS Safety Report 24395350 (Version 1)
Quarter: 2024Q4

REPORT INFORMATION
  Report Type: Spontaneous
  Country: US (occurrence: US)
  Receive Date: 20241004
  Receipt Date: 20241004
  Transmission Date: 20250114
  Serious: Yes (Hospitalization, Other)
  Sender: APOTEX
  Company Number: US-APOTEX-2024AP011570

PATIENT
  Age: 76 Year
  Sex: Male

DRUGS (3)
  1. GEMCITABINE [Suspect]
     Active Substance: GEMCITABINE
     Indication: Bladder transitional cell carcinoma
     Dosage: UNK, 4 CYCLES
     Route: 065
  2. CISPLATIN [Suspect]
     Active Substance: CISPLATIN
     Indication: Bladder transitional cell carcinoma
     Dosage: UNK, 4 CYCLES
     Route: 065
  3. PEGFILGRASTIM [Concomitant]
     Active Substance: PEGFILGRASTIM
     Indication: Product used for unknown indication
     Dosage: UNK
     Route: 065

REACTIONS (2)
  - Necrotising oesophagitis [Recovering/Resolving]
  - Neutropenic sepsis [Recovering/Resolving]
